FAERS Safety Report 14332791 (Version 3)
Quarter: 2018Q1

REPORT INFORMATION
  Report Type: Spontaneous
  Country: GB (occurrence: GB)
  Receive Date: 20171228
  Receipt Date: 20180205
  Transmission Date: 20180509
  Serious: Yes (Death, Other)
  Sender: FDA-Public Use
  Company Number: GB-ABBVIE-17P-167-2205812-00

PATIENT
  Age: 57 Year
  Sex: Male

DRUGS (1)
  1. VENETOCLAX. [Suspect]
     Active Substance: VENETOCLAX
     Indication: MANTLE CELL LYMPHOMA REFRACTORY
     Route: 048
     Dates: start: 20170810, end: 20170910

REACTIONS (8)
  - Lower respiratory tract infection [Unknown]
  - Splenomegaly [Unknown]
  - Pulmonary vascular disorder [Unknown]
  - Mantle cell lymphoma refractory [Fatal]
  - Lung consolidation [Unknown]
  - Lymphadenopathy [Unknown]
  - Pneumonia [Fatal]
  - Pleural effusion [Unknown]

NARRATIVE: CASE EVENT DATE: 20170904
